FAERS Safety Report 9913304 (Version 1)
Quarter: 2014Q1

REPORT INFORMATION
  Report Type: Spontaneous
  Country: US (occurrence: None)
  Receive Date: 20140218
  Receipt Date: 20140218
  Transmission Date: 20141002
  Serious: Yes (Other)
  Sender: FDA-Public Use
  Company Number: None

PATIENT
  Age: 56 Year
  Sex: Male

DRUGS (2)
  1. REVLIMID CELGENE [Suspect]
     Indication: PLASMA CELL MYELOMA
     Dates: start: 201207, end: 201305
  2. DEXAMETHASONE [Suspect]
     Indication: PLASMA CELL MYELOMA

REACTIONS (3)
  - Condition aggravated [None]
  - Plasma cell myeloma [None]
  - Back disorder [None]
